FAERS Safety Report 15740091 (Version 3)
Quarter: 2019Q2

REPORT INFORMATION
  Report Type: Spontaneous
  Country: US (occurrence: US)
  Receive Date: 20181219
  Receipt Date: 20190624
  Transmission Date: 20190711
  Serious: Yes (Other)
  Sender: FDA-Public Use
  Company Number: US-SA-2018SA343144

PATIENT
  Age: 51 Year
  Sex: Female
  Weight: 145 kg

DRUGS (19)
  1. CHOLECALCIFEROL [Concomitant]
     Active Substance: CHOLECALCIFEROL
  2. IPRATROPIUM [Concomitant]
     Active Substance: IPRATROPIUM
  3. OMEPRAZOLE. [Concomitant]
     Active Substance: OMEPRAZOLE
  4. XOPENEX [Concomitant]
     Active Substance: LEVALBUTEROL HYDROCHLORIDE
  5. ASPIRINE [Concomitant]
     Active Substance: ASPIRIN
     Dosage: UNK
  6. TAXOL [Concomitant]
     Active Substance: PACLITAXEL
  7. CEFUROXIME. [Concomitant]
     Active Substance: CEFUROXIME
  8. FUROSEMIDE. [Concomitant]
     Active Substance: FUROSEMIDE
  9. LIDOCAINE. [Concomitant]
     Active Substance: LIDOCAINE
  10. CLONAZEPAM. [Concomitant]
     Active Substance: CLONAZEPAM
  11. NEOSAR [Concomitant]
     Active Substance: CYCLOPHOSPHAMIDE
  12. METFORMIN [Concomitant]
     Active Substance: METFORMIN HYDROCHLORIDE
  13. NYSTATIN. [Concomitant]
     Active Substance: NYSTATIN
  14. OXYCODONE [Concomitant]
     Active Substance: OXYCODONE
  15. TAXOTERE [Suspect]
     Active Substance: DOCETAXEL
     Dosage: UNK UNK, Q3W
     Route: 042
     Dates: start: 20121206, end: 20121206
  16. SIMVASTATIN. [Concomitant]
     Active Substance: SIMVASTATIN
  17. LORAZEPAM. [Concomitant]
     Active Substance: LORAZEPAM
  18. LEVALBUTEROL TARTRATE. [Concomitant]
     Active Substance: LEVALBUTEROL TARTRATE
     Dosage: UNK
     Dates: start: 20120306
  19. TAXOTERE [Suspect]
     Active Substance: DOCETAXEL
     Indication: BREAST CANCER
     Dosage: UNK UNK, Q3W
     Route: 042
     Dates: start: 20120920, end: 20120920

REACTIONS (2)
  - Alopecia [Recovering/Resolving]
  - Psychological trauma [Unknown]

NARRATIVE: CASE EVENT DATE: 201306
